FAERS Safety Report 5980622-7 (Version None)
Quarter: 2008Q4

REPORT INFORMATION
  Report Type: 
  Country: None (occurrence: None)
  Receive Date: 20081205
  Receipt Date: 20080219
  Transmission Date: 20090506
  Serious: No
  Sender: FDA-Public Use
  Company Number: A0710381A

PATIENT
  Age: 44 Year
  Sex: Male

DRUGS (2)
  1. COMMIT [Suspect]
  2. LIBRIUM [Concomitant]

REACTIONS (4)
  - INTENTIONAL DRUG MISUSE [None]
  - NICOTINE DEPENDENCE [None]
  - OROPHARYNGEAL PAIN [None]
  - PSYCHOMOTOR HYPERACTIVITY [None]
